FAERS Safety Report 4835017-6 (Version None)
Quarter: 2005Q4

REPORT INFORMATION
  Report Type: 
  Country: None (occurrence: None)
  Receive Date: 20051114
  Receipt Date: 20051101
  Transmission Date: 20060501
  Serious: Yes (Other)
  Sender: FDA-Public Use
  Company Number: 2005151098

PATIENT
  Age: 78 Year
  Sex: Male
  Weight: 65.7716 kg

DRUGS (9)
  1. VIAGRA [Suspect]
     Indication: ERECTILE DYSFUNCTION
     Dosage: 50 MG (50 MG, 1 AS NECESSARY) ORAL
     Route: 048
     Dates: start: 20050901, end: 20051028
  2. AMARYL [Concomitant]
  3. AVANDIA [Concomitant]
  4. SOTALOL [Concomitant]
  5. AVALIDE [Concomitant]
  6. NORVASC [Concomitant]
  7. PROTONIX [Concomitant]
  8. WELCHOL [Concomitant]
  9. MIRAPEX [Concomitant]

REACTIONS (1)
  - RED BLOOD CELL COUNT DECREASED [None]
